FAERS Safety Report 5873081-6 (Version None)
Quarter: 2008Q3

REPORT INFORMATION
  Report Type: 
  Country: None (occurrence: None)
  Receive Date: 20080825
  Receipt Date: 20080811
  Transmission Date: 20090109
  Serious: Yes (Other)
  Sender: FDA-Public Use
  Company Number: THYM-1000751

PATIENT
  Sex: Female

DRUGS (1)
  1. THYMOGLOBULIN [Suspect]
     Indication: DRUG USE FOR UNKNOWN INDICATION
     Dosage: UNK, INTRAVENOUS
     Route: 042
     Dates: start: 20080101, end: 20080101

REACTIONS (3)
  - ABO INCOMPATIBILITY [None]
  - HAEMOLYSIS [None]
  - MULTI-ORGAN FAILURE [None]
